FAERS Safety Report 25331293 (Version 1)
Quarter: 2025Q2

REPORT INFORMATION
  Report Type: Spontaneous
  Country: US (occurrence: None)
  Receive Date: 20250518
  Receipt Date: 20250518
  Transmission Date: 20250717
  Serious: Yes (Hospitalization, Other)
  Sender: FDA-CTU
  Company Number: None

PATIENT
  Age: 47 Year
  Sex: Female
  Weight: 142.2 kg

DRUGS (1)
  1. DIETARY SUPPLEMENT\HERBALS [Suspect]
     Active Substance: DIETARY SUPPLEMENT\HERBALS
     Indication: Pain
     Route: 048
     Dates: start: 20250401, end: 20250501

REACTIONS (4)
  - Suspected product contamination [None]
  - Suspected counterfeit product [None]
  - Product label issue [None]
  - Drug hypersensitivity [None]

NARRATIVE: CASE EVENT DATE: 20250501
